FAERS Safety Report 9402541 (Version 1)
Quarter: 2013Q3

REPORT INFORMATION
  Report Type: Spontaneous
  Country: GB (occurrence: GB)
  Receive Date: 20130716
  Receipt Date: 20130716
  Transmission Date: 20140515
  Serious: Yes (Life-Threatening, Hospitalization, Other)
  Sender: FDA-Public Use
  Company Number: GB-PFIZER INC-2013205794

PATIENT
  Age: 88 Year
  Sex: Female
  Weight: 71 kg

DRUGS (16)
  1. PREGABALIN [Suspect]
     Dosage: UNK
  2. LEVOTHYROXINE [Concomitant]
     Dosage: UNK
  3. SENNA [Concomitant]
     Dosage: UNK
  4. BISACODYL [Concomitant]
     Dosage: UNK
  5. AMITRIPTYLINE [Concomitant]
     Dosage: UNK
  6. RAMIPRIL [Concomitant]
     Dosage: UNK
  7. ACETYLSALICYLIC ACID [Concomitant]
     Dosage: UNK
  8. LACTULOSE [Concomitant]
     Dosage: UNK
  9. RANITIDINE [Concomitant]
     Dosage: UNK
  10. PARACETAMOL [Concomitant]
     Dosage: UNK
  11. MAGNESIUM [Concomitant]
     Dosage: UNK
  12. ADCAL-D3 [Concomitant]
     Dosage: UNK
  13. VITAMIN B COMPLEX [Concomitant]
     Dosage: UNK
  14. OXYBUTYNIN [Concomitant]
     Dosage: UNK
  15. TRIMETHOPRIM [Concomitant]
     Dosage: UNK
  16. TRAMADOL [Concomitant]
     Dosage: UNK

REACTIONS (1)
  - Pancytopenia [Recovering/Resolving]
